FAERS Safety Report 14295275 (Version 2)
Quarter: 2018Q1

REPORT INFORMATION
  Report Type: Spontaneous
  Country: IN (occurrence: IN)
  Receive Date: 20171218
  Receipt Date: 20180110
  Transmission Date: 20180509
  Serious: Yes (Life-Threatening, Other)
  Sender: FDA-Public Use
  Company Number: IN-BAUSCH-BL-2017-034296

PATIENT
  Age: 52 Year
  Sex: Male

DRUGS (19)
  1. PROPOFOL. [Concomitant]
     Active Substance: PROPOFOL
     Indication: INDUCTION OF ANAESTHESIA
     Dosage: BOLUS DOSE ()
  2. NORADRENALINE [Concomitant]
     Active Substance: NOREPINEPHRINE
     Indication: PRODUCT USED FOR UNKNOWN INDICATION
     Dosage: NEGLIGIBLE DOSE
  3. MAGNESIUM [Suspect]
     Active Substance: MAGNESIUM
     Indication: BRONCHOSPASM
     Route: 042
  4. OXYGEN. [Concomitant]
     Active Substance: OXYGEN
     Indication: PRODUCT USED FOR UNKNOWN INDICATION
  5. ROCURONIUM [Concomitant]
     Active Substance: ROCURONIUM BROMIDE
     Indication: INDUCTION AND MAINTENANCE OF ANAESTHESIA
  6. ADRENALINE [Concomitant]
     Active Substance: EPINEPHRINE
  7. PROSTAGLANDIN E1 [Concomitant]
     Active Substance: ALPROSTADIL
     Indication: PRODUCT USED FOR UNKNOWN INDICATION
     Dosage: INTRA ARTERIAL BOLUS
     Route: 013
  8. PROPOFOL. [Concomitant]
     Active Substance: PROPOFOL
     Indication: BRONCHOSPASM
  9. LIGNOCAINE [Concomitant]
     Active Substance: LIDOCAINE HYDROCHLORIDE
     Indication: INDUCTION OF ANAESTHESIA
  10. NORADRENALINE [Concomitant]
     Active Substance: NOREPINEPHRINE
     Dosage: 0.2 MICROGRAM/KG PER ONE  MINUTE
  11. SEVOFLURANE. [Concomitant]
     Active Substance: SEVOFLURANE
     Indication: BRONCHOSPASM
  12. FLUTICASONE. [Concomitant]
     Active Substance: FLUTICASONE
     Indication: OBSTRUCTIVE AIRWAYS DISORDER
  13. SEVOFLURANE. [Concomitant]
     Active Substance: SEVOFLURANE
     Dosage: INCREASING THE DEPTH OF ANAESTHESIA
  14. SALBUTAMOL [Suspect]
     Active Substance: ALBUTEROL
     Indication: BRONCHOSPASM
     Dosage: METERED DOSES
     Route: 055
  15. METHYLPREDNISOLONE. [Concomitant]
     Active Substance: METHYLPREDNISOLONE
     Indication: PRODUCT USED FOR UNKNOWN INDICATION
     Route: 040
  16. FENTANYL. [Concomitant]
     Active Substance: FENTANYL
     Indication: INDUCTION AND MAINTENANCE OF ANAESTHESIA
  17. SALMETEROL/FLUTICASONE [Concomitant]
     Active Substance: FLUTICASONE PROPIONATE\SALMETEROL XINAFOATE
     Indication: PRODUCT USED FOR UNKNOWN INDICATION
     Route: 055
  18. ADRENALINE [Concomitant]
     Active Substance: EPINEPHRINE
     Indication: BRONCHOSPASM
     Dosage: BOLUS DOSE
  19. KETAMINE [Concomitant]
     Active Substance: KETAMINE
     Indication: BRONCHOSPASM
     Dosage: BOLUS DOSE

REACTIONS (1)
  - Drug ineffective [Unknown]
